FAERS Safety Report 9648821 (Version 2)
Quarter: 2013Q4

REPORT INFORMATION
  Report Type: Spontaneous
  Country: US (occurrence: US)
  Receive Date: 20131028
  Receipt Date: 20131127
  Transmission Date: 20140711
  Serious: Yes (Hospitalization, Other)
  Sender: FDA-Public Use
  Company Number: US-SA-2013SA107726

PATIENT
  Age: 62 Year
  Sex: Male
  Weight: 108 kg

DRUGS (12)
  1. LANTUS SOLOSTAR [Suspect]
     Indication: TYPE 2 DIABETES MELLITUS
     Dosage: DOSE:30 UNIT(S)
     Route: 058
     Dates: start: 20010807
  2. SOLOSTAR [Concomitant]
     Indication: TYPE 2 DIABETES MELLITUS
     Dates: start: 2001
  3. METFORMIN [Concomitant]
     Route: 048
  4. COREG [Concomitant]
     Route: 048
  5. LASIX [Concomitant]
     Route: 048
  6. ASPIRIN [Concomitant]
     Route: 048
  7. CLONIDINE [Concomitant]
     Indication: HYPERTENSION
     Dosage: TAKE EVERY 4 HOURS AS NEEDED WHEN BLOOD PRESSURE IS HIGHER THAN 160.
  8. PRAVASTATIN [Concomitant]
  9. VALIUM [Concomitant]
  10. BENICAR HCT [Concomitant]
     Indication: HYPERTENSION
     Dosage: 40MG/25MG DOSE
  11. TYLENOL [Concomitant]
     Dosage: DOSE: LIMIT 4 GRAM
  12. KLOR-CON [Concomitant]
     Dosage: EXTENDED RELEASE TABLET, WITH MEALS
     Route: 048

REACTIONS (5)
  - Deafness [Unknown]
  - Myocardial infarction [Not Recovered/Not Resolved]
  - Dyspnoea [Not Recovered/Not Resolved]
  - Cerebrovascular accident [Unknown]
  - Visual acuity reduced [Unknown]
